FAERS Safety Report 9700920 (Version 4)
Quarter: 2014Q1

REPORT INFORMATION
  Report Type: Report from Study
  Country: PL (occurrence: PL)
  Receive Date: 20131121
  Receipt Date: 20140313
  Transmission Date: 20141002
  Serious: Yes (Death, Other)
  Sender: FDA-Public Use
  Company Number: PL-ROCHE-1302344

PATIENT
  Sex: Female

DRUGS (27)
  1. RITUXIMAB [Suspect]
     Indication: CHRONIC LYMPHOCYTIC LEUKAEMIA
     Dosage: -DAY 1?- 3 CYCLES BETWEEN MARCH-MAY 2008
     Route: 042
     Dates: start: 200803, end: 200805
  2. RITUXIMAB [Suspect]
     Dosage: -DAY 1?- 1CYCLE
     Route: 042
     Dates: start: 20090810, end: 20090810
  3. RITUXIMAB [Suspect]
     Dosage: DAY 1
     Route: 042
     Dates: start: 20090907, end: 20090907
  4. RITUXIMAB [Suspect]
     Dosage: -DAY1?-3 CYCLES BETWEEN APRIL-JULY 2010
     Route: 042
     Dates: start: 201004, end: 201007
  5. RITUXIMAB [Suspect]
     Route: 042
     Dates: start: 200803
  6. RITUXIMAB [Suspect]
     Dosage: DAY 1
     Route: 042
     Dates: start: 20091005, end: 20091005
  7. RITUXIMAB [Suspect]
     Dosage: DAY 1
     Route: 042
     Dates: start: 20091102, end: 20091102
  8. RITUXIMAB [Suspect]
     Dosage: DAY 1
     Route: 042
     Dates: start: 20091130, end: 20091130
  9. RITUXIMAB [Suspect]
     Dosage: DAY 1
     Route: 042
     Dates: start: 20091228, end: 20091228
  10. RITUXIMAB [Suspect]
     Dosage: DAY 1
     Route: 042
     Dates: start: 20100125, end: 20100125
  11. RITUXIMAB [Suspect]
     Dosage: ONE DAY TREATMENT
     Route: 042
     Dates: start: 20110426, end: 20110426
  12. RITUXIMAB [Suspect]
     Dosage: ONE DAY TREATMENT
     Route: 042
     Dates: start: 20120526, end: 20120526
  13. RITUXIMAB [Suspect]
     Dosage: ONE DAY TREATMENT
     Route: 042
     Dates: start: 20120705, end: 20120705
  14. DOXORUBICINE [Suspect]
     Indication: PRODUCT USED FOR UNKNOWN INDICATION
     Dosage: DAY1
     Route: 042
     Dates: start: 200908
  15. DOXORUBICINE [Suspect]
     Dosage: DAY1
     Route: 042
     Dates: start: 201004, end: 201007
  16. VINCRISTINE [Suspect]
     Indication: PRODUCT USED FOR UNKNOWN INDICATION
     Dosage: DAY1
     Route: 042
     Dates: start: 200908
  17. VINCRISTINE [Suspect]
     Dosage: DAY1
     Route: 042
     Dates: start: 201004, end: 201007
  18. CYCLOPHOSPHAMIDE [Suspect]
     Indication: PRODUCT USED FOR UNKNOWN INDICATION
     Dosage: DAY 1-3?- 6 CYCLES BETWEEN FEB-JUL 2005
     Route: 042
     Dates: start: 200502, end: 200507
  19. CYCLOPHOSPHAMIDE [Suspect]
     Dosage: DAY 1-3?-3 CYCLES BETWEEN MAR-MAY 2008
     Route: 042
     Dates: start: 200803, end: 200805
  20. CYCLOPHOSPHAMIDE [Suspect]
     Dosage: DAY1
     Route: 042
     Dates: start: 200908
  21. CYCLOPHOSPHAMIDE [Suspect]
     Dosage: DAY1?- 3 CYCLES BETWEEN APR-JUL 2010
     Route: 042
     Dates: start: 201004, end: 201007
  22. ENCORTON [Concomitant]
     Dosage: - 2WEEKS
     Route: 048
     Dates: start: 200706
  23. ENCORTON [Concomitant]
     Route: 065
     Dates: start: 201203, end: 201205
  24. CLADRIBINE [Concomitant]
     Dosage: DAY 1-3
     Route: 042
     Dates: start: 200803, end: 200805
  25. CLADRIBINE [Concomitant]
     Dosage: DAY 1-3
     Route: 042
     Dates: start: 200502, end: 200507
  26. SOLU-MEDROL [Concomitant]
     Dosage: DAY 1-4
     Route: 042
     Dates: start: 200909, end: 201001
  27. CARBOPLATIN [Concomitant]
     Route: 065
     Dates: start: 201203, end: 201205

REACTIONS (16)
  - Pneumonia [Fatal]
  - Neuroendocrine carcinoma of the skin [Fatal]
  - Agranulocytosis [Unknown]
  - Herpes zoster [Unknown]
  - Lymphadenopathy [Unknown]
  - Thrombocytopenia [Unknown]
  - Skin disorder [Unknown]
  - Epistaxis [Unknown]
  - Gingival bleeding [Unknown]
  - Abdominal pain [Unknown]
  - Constipation [Unknown]
  - Asthenia [Unknown]
  - Weight decreased [Unknown]
  - Pyrexia [Unknown]
  - Rash papular [Unknown]
  - Disease progression [Unknown]
